FAERS Safety Report 6630317-1 (Version None)
Quarter: 2010Q1

REPORT INFORMATION
  Report Type: 
  Country: None (occurrence: None)
  Receive Date: 20100311
  Receipt Date: 20100304
  Transmission Date: 20100710
  Serious: Yes (Life-Threatening)
  Sender: FDA-Public Use
  Company Number: PHHY2010JP12906

PATIENT
  Age: 63 Year
  Sex: Male

DRUGS (5)
  1. GLEEVEC [Suspect]
     Indication: GASTROINTESTINAL STROMAL TUMOUR
     Dosage: UNK
     Dates: start: 20090827
  2. NU-LOTAN [Concomitant]
     Dosage: UNK
  3. ALLOZYM [Concomitant]
     Dosage: UNK
  4. GLIMICRON [Concomitant]
     Dosage: UNK
  5. MIGLITOL [Concomitant]

REACTIONS (3)
  - CARDIO-RESPIRATORY ARREST [None]
  - LOSS OF CONSCIOUSNESS [None]
  - TORSADE DE POINTES [None]
